FAERS Safety Report 4459339-6 (Version None)
Quarter: 2004Q3

REPORT INFORMATION
  Report Type: 
  Country: None (occurrence: None)
  Receive Date: 20040924
  Receipt Date: 20040903
  Transmission Date: 20050211
  Serious: Yes (Life-Threatening)
  Sender: FDA-Public Use
  Company Number: 4037

PATIENT
  Age: 68 Year
  Sex: Male

DRUGS (3)
  1. NITROGLYCERIN [Suspect]
     Indication: CHEST PAIN
     Dosage: ONE TABLET, SUBLINGUAL
     Route: 060
  2. NORVASC [Concomitant]
  3. MAXZIDE [Concomitant]

REACTIONS (6)
  - BLOOD PRESSURE DECREASED [None]
  - CHEST PAIN [None]
  - FEELING HOT [None]
  - HEART RATE DECREASED [None]
  - HYPERHIDROSIS [None]
  - PALLOR [None]
